FAERS Safety Report 13945066 (Version 3)
Quarter: 2017Q3

REPORT INFORMATION
  Report Type: Spontaneous
  Country: FR (occurrence: FR)
  Receive Date: 20170907
  Receipt Date: 20170911
  Transmission Date: 20171128
  Serious: Yes (Death, Hospitalization, Other)
  Sender: FDA-Public Use
  Company Number: FR-CELGENEUS-FRA-20170809252

PATIENT

DRUGS (2)
  1. AZACITIDINE. [Suspect]
     Active Substance: AZACITIDINE
     Indication: ACUTE MYELOID LEUKAEMIA
     Route: 058
  2. AZACITIDINE. [Suspect]
     Active Substance: AZACITIDINE
     Indication: MYELODYSPLASTIC SYNDROME

REACTIONS (8)
  - Adverse event [Unknown]
  - General physical health deterioration [Unknown]
  - Disease progression [Unknown]
  - Infection [Fatal]
  - Bone marrow failure [Unknown]
  - Cardiac failure [Fatal]
  - Febrile neutropenia [Unknown]
  - Cardiac failure [Unknown]
